FAERS Safety Report 8589261-5 (Version None)
Quarter: 2012Q3

REPORT INFORMATION
  Report Type: 
  Country: None (occurrence: None)
  Receive Date: 20120813
  Receipt Date: 20120804
  Transmission Date: 20120928
  Serious: Yes (Other)
  Sender: FDA-Public Use
  Company Number: US-PFIZER INC-2012190841

PATIENT
  Age: 47 Year
  Sex: Male

DRUGS (1)
  1. DILANTIN [Suspect]

REACTIONS (6)
  - EOSINOPHIL COUNT INCREASED [None]
  - DERMATITIS [None]
  - LUNG INFILTRATION [None]
  - HYPOXIA [None]
  - HYPERSENSITIVITY [None]
  - HEPATITIS [None]
